FAERS Safety Report 20621724 (Version 1)
Quarter: 2022Q1

REPORT INFORMATION
  Report Type: Spontaneous
  Country: US (occurrence: None)
  Receive Date: 20220321
  Receipt Date: 20220321
  Transmission Date: 20220423
  Serious: Yes (Other)
  Sender: FDA-Public Use
  Company Number: None

PATIENT
  Age: 37 Year
  Sex: Female
  Weight: 62.1 kg

DRUGS (2)
  1. .DELTA.8-TETRAHYDROCANNABINOL\CANNABIDIOL\HERBALS [Suspect]
     Active Substance: .DELTA.8-TETRAHYDROCANNABINOL\CANNABIDIOL\HERBALS
     Indication: Substance use
     Dates: start: 20220318, end: 20220318
  2. UNSPECIFIED INGREDIENT [Concomitant]
     Active Substance: UNSPECIFIED INGREDIENT

REACTIONS (10)
  - Abdominal pain upper [None]
  - Syncope [None]
  - Speech disorder [None]
  - Movement disorder [None]
  - Decreased eye contact [None]
  - Hypoaesthesia [None]
  - Limb discomfort [None]
  - Muscle disorder [None]
  - Hypokinesia [None]
  - Grip strength decreased [None]

NARRATIVE: CASE EVENT DATE: 20220318
